FAERS Safety Report 8496860-8 (Version None)
Quarter: 2012Q3

REPORT INFORMATION
  Report Type: 
  Country: None (occurrence: None)
  Receive Date: 20120709
  Receipt Date: 20120627
  Transmission Date: 20120928
  Serious: Yes (Other)
  Sender: FDA-Public Use
  Company Number: US-ELI_LILLY_AND_COMPANY-US201207000737

PATIENT
  Sex: Female

DRUGS (2)
  1. FORTEO [Suspect]
     Indication: OSTEOPOROSIS
     Dosage: 20 UG, QD
  2. CALCIUM [Concomitant]
     Dosage: 50000 IU, WEEKLY (1/W)

REACTIONS (6)
  - RADICULOPATHY [None]
  - DRUG INEFFECTIVE [None]
  - NAUSEA [None]
  - BONE DISORDER [None]
  - DECREASED APPETITE [None]
  - WEIGHT DECREASED [None]
